FAERS Safety Report 5499750-8 (Version None)
Quarter: 2007Q4

REPORT INFORMATION
  Report Type: 
  Country: None (occurrence: None)
  Receive Date: 20071026
  Receipt Date: 20071025
  Transmission Date: 20080405
  Serious: No
  Sender: FDA-Public Use
  Company Number: US-BOEHRINGER INGELHEIM PHARMACEUTICALS, INC.-2007-BP-20036BP

PATIENT
  Sex: Male

DRUGS (2)
  1. MICARDIS HCT [Suspect]
  2. POTASSIUM CHLORIDE [Concomitant]

REACTIONS (1)
  - VISION BLURRED [None]
